FAERS Safety Report 21173235 (Version 1)
Quarter: 2022Q3

REPORT INFORMATION
  Report Type: Spontaneous
  Country: US (occurrence: US)
  Receive Date: 20220804
  Receipt Date: 20220804
  Transmission Date: 20221026
  Serious: No
  Sender: FDA-Public Use
  Company Number: US-PFIZER INC-PV202200034855

PATIENT
  Age: 26 Year
  Sex: Female

DRUGS (4)
  1. PAXLOVID [Interacting]
     Active Substance: NIRMATRELVIR\RITONAVIR
     Indication: COVID-19 treatment
     Dosage: UNK
  2. TARPEYO [Interacting]
     Active Substance: BUDESONIDE
     Indication: IgA nephropathy
     Dosage: 16 MG, 1X/DAY
     Route: 048
     Dates: start: 20220504
  3. TARPEYO [Interacting]
     Active Substance: BUDESONIDE
     Indication: Haematuria
  4. TARPEYO [Interacting]
     Active Substance: BUDESONIDE
     Indication: Glomerulonephritis proliferative

REACTIONS (6)
  - Off label use [Unknown]
  - Drug interaction [Unknown]
  - Mood swings [Unknown]
  - Cushingoid [Unknown]
  - Weight increased [Unknown]
  - Swelling [Unknown]
